FAERS Safety Report 12598052 (Version 1)
Quarter: 2016Q3

REPORT INFORMATION
  Report Type: Other
  Country: CA (occurrence: CA)
  Receive Date: 20160726
  Receipt Date: 20160726
  Transmission Date: 20161109
  Serious: Yes (Death)
  Sender: FDA-Public Use
  Company Number: CA-HLSUS-2016-CA-000245

PATIENT
  Age: 78 Year
  Sex: Female

DRUGS (13)
  1. LAX-A-DAY [Concomitant]
     Dosage: 17 G
  2. HALDOL [Concomitant]
     Active Substance: HALOPERIDOL
     Dosage: 5 MG
  3. TYLENOL [Concomitant]
     Active Substance: ACETAMINOPHEN
  4. ABILIFY [Concomitant]
     Active Substance: ARIPIPRAZOLE
     Dosage: 10 MG
  5. SENOKOT [Concomitant]
     Active Substance: SENNOSIDES
     Dosage: 8.6 MG
  6. PANTOLOC//PANTOPRAZOLE SODIUM SESQUIHYDRATE [Concomitant]
     Active Substance: PANTOPRAZOLE SODIUM
     Dosage: 40 MG
  7. COLACE [Concomitant]
     Active Substance: DOCUSATE SODIUM
     Dosage: 100 MG
  8. AVAPRO [Concomitant]
     Active Substance: IRBESARTAN
  9. MAGLUCATE [Concomitant]
     Dosage: 500 MG
  10. CLOZARIL [Suspect]
     Active Substance: CLOZAPINE
     Indication: SCHIZOPHRENIA
     Dosage: 400 MG, QD
     Route: 048
     Dates: start: 20130805, end: 20150111
  11. VITAMIN D [Concomitant]
     Active Substance: CHOLECALCIFEROL
     Dosage: 10000 OT
  12. HALDOL [Concomitant]
     Active Substance: HALOPERIDOL
     Dosage: 5 MG
  13. SEROQUEL [Concomitant]
     Active Substance: QUETIAPINE FUMARATE

REACTIONS (15)
  - Sudden death [Fatal]
  - Cardio-respiratory arrest [Unknown]
  - White blood cell count decreased [Unknown]
  - Red blood cell count decreased [Unknown]
  - Electrocardiogram QT prolonged [Unknown]
  - Aggression [Unknown]
  - Disorientation [Unknown]
  - Antipsychotic drug level increased [Unknown]
  - Torsade de pointes [Unknown]
  - Psychiatric decompensation [Unknown]
  - Urinary tract infection [Unknown]
  - Lymphocyte count decreased [Unknown]
  - Delirium [Unknown]
  - Haematocrit decreased [Unknown]
  - Haemoglobin decreased [Unknown]

NARRATIVE: CASE EVENT DATE: 20160218
